FAERS Safety Report 20136874 (Version 1)
Quarter: 2021Q4

REPORT INFORMATION
  Report Type: Spontaneous
  Country: US (occurrence: None)
  Receive Date: 20211201
  Receipt Date: 20211201
  Transmission Date: 20220304
  Serious: No
  Sender: FDA-Public Use
  Company Number: 2021A848551

PATIENT
  Age: 52 Year
  Sex: Female
  Weight: 56.7 kg

DRUGS (3)
  1. PULMICORT FLEXHALER [Suspect]
     Active Substance: BUDESONIDE
     Indication: Multiple allergies
     Dosage: 1 INHALATION DAILY AS NEEDED
     Route: 055
  2. PROPRANOLOL [Concomitant]
     Active Substance: PROPRANOLOL HYDROCHLORIDE
  3. UNSPECIFIED INGREDIENT [Concomitant]
     Active Substance: UNSPECIFIED INGREDIENT

REACTIONS (4)
  - Pruritus [Not Recovered/Not Resolved]
  - Off label use [Unknown]
  - Intentional device misuse [Unknown]
  - Incorrect dose administered by device [Unknown]

NARRATIVE: CASE EVENT DATE: 20211101
